FAERS Safety Report 5491610-1 (Version None)
Quarter: 2007Q4

REPORT INFORMATION
  Report Type: 
  Country: None (occurrence: None)
  Receive Date: 20071022
  Receipt Date: 20071015
  Transmission Date: 20080405
  Serious: Yes (Other)
  Sender: FDA-Public Use
  Company Number: CA-JNJFOC-20071004047

PATIENT
  Sex: Female

DRUGS (1)
  1. CHILDRENS TYLENOL COLD AND COUGH NIGHTTIME [Suspect]
     Indication: NASOPHARYNGITIS
     Route: 048

REACTIONS (4)
  - AGGRESSION [None]
  - HALLUCINATION [None]
  - NIGHTMARE [None]
  - RESTLESSNESS [None]
